FAERS Safety Report 6537024-4 (Version None)
Quarter: 2010Q1

REPORT INFORMATION
  Report Type: 
  Country: None (occurrence: None)
  Receive Date: 20100110
  Receipt Date: 20091222
  Transmission Date: 20100710
  Serious: Yes (Other)
  Sender: FDA-Public Use
  Company Number: BVT-000445

PATIENT

DRUGS (2)
  1. ANAKINRA (BIOVITRUM AB.) [Suspect]
     Indication: JUVENILE ARTHRITIS
  2. CORTICOSTEROIDS [Concomitant]

REACTIONS (3)
  - DIARRHOEA [None]
  - HEPATITIS ACUTE [None]
  - PYREXIA [None]
